FAERS Safety Report 17826225 (Version 1)
Quarter: 2020Q2

REPORT INFORMATION
  Report Type: Spontaneous
  Country: FR (occurrence: FR)
  Receive Date: 20200526
  Receipt Date: 20200526
  Transmission Date: 20200714
  Serious: Yes (Hospitalization)
  Sender: FDA-Public Use
  Company Number: FR-JNJFOC-20200513443

PATIENT
  Sex: Male

DRUGS (1)
  1. RISPERDAL [Suspect]
     Active Substance: RISPERIDONE
     Indication: PSYCHOTIC DISORDER
     Dosage: TREATED FOR SEVERAL YEARS (FROM 3-10 YEARS)
     Route: 048

REACTIONS (4)
  - Headache [Unknown]
  - Adjustment disorder [Unknown]
  - Obstruction [Unknown]
  - Blood urine present [Unknown]
